FAERS Safety Report 22058917 (Version 1)
Quarter: 2023Q1

REPORT INFORMATION
  Report Type: Spontaneous
  Country: US (occurrence: US)
  Receive Date: 20230303
  Receipt Date: 20230303
  Transmission Date: 20230417
  Serious: No
  Sender: FDA-Public Use
  Company Number: US-BAYER-2023A021213

PATIENT
  Weight: 181.41 kg

DRUGS (1)
  1. GADAVIST [Suspect]
     Active Substance: GADOBUTROL
     Dosage: 15 ML
     Dates: start: 20230120, end: 20230120

REACTIONS (1)
  - Vomiting [None]

NARRATIVE: CASE EVENT DATE: 20230120
